FAERS Safety Report 19162870 (Version 1)
Quarter: 2021Q2

REPORT INFORMATION
  Report Type: Spontaneous
  Country: US (occurrence: US)
  Receive Date: 20210420
  Receipt Date: 20210420
  Transmission Date: 20210717
  Serious: Yes (Hospitalization)
  Sender: FDA-Public Use
  Company Number: None

PATIENT
  Sex: Male

DRUGS (8)
  1. PULMOZYME [Suspect]
     Active Substance: DORNASE ALFA
     Indication: CYSTIC FIBROSIS
     Dosage: ?          OTHER ROUTE:NEBULIZATION?
     Dates: start: 20200313
  2. CIPRO 10% [Concomitant]
  3. PHYTONADIONE. [Concomitant]
     Active Substance: PHYTONADIONE
  4. SODIUM CHLOR NEB 7% [Concomitant]
  5. IPRATROOPIUM INH [Concomitant]
  6. SULFATRIM PD [Concomitant]
  7. ALBUTEROL NEB [Concomitant]
     Active Substance: ALBUTEROL
  8. FAMOTIDINE. [Concomitant]
     Active Substance: FAMOTIDINE

REACTIONS (2)
  - Gastrointestinal disorder [None]
  - Liver disorder [None]
